FAERS Safety Report 9681561 (Version 3)
Quarter: 2013Q4

REPORT INFORMATION
  Report Type: Report from Study
  Country: FR (occurrence: FR)
  Receive Date: 20131111
  Receipt Date: 20131205
  Transmission Date: 20140711
  Serious: Yes (Other)
  Sender: FDA-Public Use
  Company Number: FR-SA-CAMP-1003003

PATIENT
  Age: 77 Year
  Sex: Male

DRUGS (11)
  1. CAMPATH [Suspect]
     Indication: CHRONIC LYMPHOCYTIC LEUKAEMIA
     Dosage: 30 MG, 3X/W
     Route: 059
     Dates: start: 20130405, end: 20130522
  2. CAMPATH [Suspect]
     Indication: CHRONIC LYMPHOCYTIC LEUKAEMIA
     Dosage: 30 MG, 3X/W
     Route: 059
     Dates: start: 20130524, end: 20130610
  3. CAMPATH [Suspect]
     Indication: CHRONIC LYMPHOCYTIC LEUKAEMIA
     Dosage: UNK
     Route: 065
     Dates: start: 20130810, end: 20130906
  4. ZOPICLONE [Concomitant]
     Dosage: 1 DF, QD
     Route: 065
  5. DIFFU K [Concomitant]
     Dosage: 3 DF, BID
     Route: 065
  6. CORTANCYL [Concomitant]
     Indication: GLOMERULONEPHRITIS
     Dosage: 10 MG, QD
     Route: 065
     Dates: start: 201304
  7. TRIATEC [Concomitant]
     Dosage: 2.5 MG, QD
     Route: 065
  8. LASILIX [Concomitant]
     Indication: GLOMERULONEPHRITIS
     Dosage: 40 MG, QD
     Route: 065
     Dates: start: 201304
  9. BACTRIM [Concomitant]
     Dosage: 3 DF, 1X/W
     Route: 065
  10. KARDEGIC [Concomitant]
     Dosage: 160 MG, QD
     Route: 065
  11. ZELITREX [Concomitant]
     Dosage: 2 DF, QD
     Route: 065

REACTIONS (3)
  - Peripheral nerve paresis [Recovered/Resolved]
  - Leukopenia [Recovered/Resolved]
  - Neutropenia [Recovered/Resolved]
